FAERS Safety Report 6737928-3 (Version None)
Quarter: 2010Q2

REPORT INFORMATION
  Report Type: 
  Country: None (occurrence: None)
  Receive Date: 20100524
  Receipt Date: 20100512
  Transmission Date: 20101027
  Serious: Yes (Other)
  Sender: FDA-Public Use
  Company Number: FR-KINGPHARMUSA00001-K201000331

PATIENT
  Age: 64 Year
  Sex: Female

DRUGS (1)
  1. ALTACE [Suspect]
     Dosage: 3.75 MG, QD
     Route: 048
     Dates: start: 20070101, end: 20100326

REACTIONS (1)
  - AORTIC VALVE STENOSIS [None]
